FAERS Safety Report 18087243 (Version 1)
Quarter: 2020Q3

REPORT INFORMATION
  Report Type: Spontaneous
  Country: AT (occurrence: AT)
  Receive Date: 20200729
  Receipt Date: 20200729
  Transmission Date: 20201103
  Serious: Yes (Disabling, Other)
  Sender: FDA-Public Use
  Company Number: AT-ASTRAZENECA-2020SE90853

PATIENT
  Age: 77 Year
  Sex: Female

DRUGS (17)
  1. VITAMIN D3 [Concomitant]
     Active Substance: CHOLECALCIFEROL
     Indication: OSTEOPOROSIS PROPHYLAXIS
     Dosage: 15 DROPS/WEEK
     Route: 048
  2. RISPERIDONE. [Suspect]
     Active Substance: RISPERIDONE
     Indication: DEMENTIA ALZHEIMER^S TYPE
     Dates: start: 200808
  3. DONEPEZIL. [Suspect]
     Active Substance: DONEPEZIL
     Indication: DEMENTIA ALZHEIMER^S TYPE
  4. RISPERIDONE. [Suspect]
     Active Substance: RISPERIDONE
     Indication: DEMENTIA ALZHEIMER^S TYPE
     Dates: start: 201601
  5. DONEPEZIL. [Suspect]
     Active Substance: DONEPEZIL
     Indication: DEMENTIA ALZHEIMER^S TYPE
     Dates: start: 200808
  6. DIAZEPAM. [Suspect]
     Active Substance: DIAZEPAM
     Indication: DEMENTIA ALZHEIMER^S TYPE
     Dates: start: 2017, end: 2018
  7. MEMANTINE. [Suspect]
     Active Substance: MEMANTINE
     Dates: start: 2017
  8. QUETIAPINE. [Suspect]
     Active Substance: QUETIAPINE
     Indication: DEMENTIA ALZHEIMER^S TYPE
     Route: 048
     Dates: start: 201601, end: 2018
  9. MEMANTINE. [Suspect]
     Active Substance: MEMANTINE
     Dates: start: 2018, end: 2019
  10. RISPERIDONE. [Suspect]
     Active Substance: RISPERIDONE
     Indication: DEMENTIA ALZHEIMER^S TYPE
     Dates: start: 2010
  11. RISPERIDONE. [Suspect]
     Active Substance: RISPERIDONE
     Indication: DEMENTIA ALZHEIMER^S TYPE
     Dates: start: 201601, end: 2019
  12. ENALAPRIL [Concomitant]
     Active Substance: ENALAPRIL
     Indication: HYPERTENSION
  13. LEVETIRACETAM. [Concomitant]
     Active Substance: LEVETIRACETAM
     Indication: EPILEPSY
     Dosage: UP TO 1,000MG/DAY
     Dates: start: 201706
  14. SERTRALINE [Suspect]
     Active Substance: SERTRALINE HYDROCHLORIDE
     Indication: DEMENTIA ALZHEIMER^S TYPE
     Dates: start: 200808
  15. DIAZEPAM. [Suspect]
     Active Substance: DIAZEPAM
     Indication: DEMENTIA ALZHEIMER^S TYPE
     Dates: start: 2016
  16. MEMANTINE. [Suspect]
     Active Substance: MEMANTINE
     Dosage: (TITRATED TO 20 MG/DAY WITHIN 4 WEEKS
     Dates: start: 201002
  17. METFORMIN [Concomitant]
     Active Substance: METFORMIN HYDROCHLORIDE
     Indication: TYPE 2 DIABETES MELLITUS

REACTIONS (5)
  - Aphasia [Not Recovered/Not Resolved]
  - Sedation [Recovering/Resolving]
  - Off label use [Unknown]
  - Immobile [Not Recovered/Not Resolved]
  - Emotional disorder [Recovering/Resolving]
